FAERS Safety Report 4506121-7 (Version None)
Quarter: 2004Q4

REPORT INFORMATION
  Report Type: 
  Country: None (occurrence: None)
  Receive Date: 20041025
  Receipt Date: 20040426
  Transmission Date: 20050328
  Serious: Yes (Other)
  Sender: FDA-Public Use
  Company Number: US-JNJFOC-20040405655

PATIENT
  Age: 37 Year
  Sex: Female
  Weight: 72.5755 kg

DRUGS (5)
  1. REMICADE [Suspect]
     Indication: RHEUMATOID ARTHRITIS
     Dosage: INTRAVENOUS
     Route: 042
     Dates: start: 20040121
  2. REMICADE [Suspect]
     Indication: RHEUMATOID ARTHRITIS
     Dosage: INTRAVENOUS
     Route: 042
     Dates: start: 20040218
  3. REMICADE [Suspect]
     Indication: RHEUMATOID ARTHRITIS
     Dosage: INTRAVENOUS
     Route: 042
     Dates: start: 20040421
  4. ARAVA [Concomitant]
  5. COUMADIN [Concomitant]

REACTIONS (7)
  - EYE REDNESS [None]
  - PHOTOSENSITIVITY REACTION [None]
  - PRURITUS [None]
  - PULMONARY EMBOLISM [None]
  - SUNBURN [None]
  - THROMBOSIS [None]
  - URTICARIA [None]
